FAERS Safety Report 16993443 (Version 2)
Quarter: 2019Q4

REPORT INFORMATION
  Report Type: Spontaneous
  Country: PE (occurrence: PE)
  Receive Date: 20191105
  Receipt Date: 20191108
  Transmission Date: 20200122
  Serious: Yes (Hospitalization)
  Sender: FDA-Public Use
  Company Number: PE-ROCHE-2452265

PATIENT
  Age: 27 Year
  Sex: Male

DRUGS (1)
  1. OCREVUS [Suspect]
     Active Substance: OCRELIZUMAB
     Indication: MULTIPLE SCLEROSIS
     Dosage: 17/OCT/2019- RECEIVED THE SECOND INFUSION
     Route: 065
     Dates: start: 20191010

REACTIONS (8)
  - Ecchymosis [Unknown]
  - Mouth ulceration [Unknown]
  - Blood creatine phosphokinase increased [Unknown]
  - Puncture site haemorrhage [Unknown]
  - Transaminases increased [Unknown]
  - Fatigue [Unknown]
  - Tachycardia [Unknown]
  - Myalgia [Unknown]

NARRATIVE: CASE EVENT DATE: 20191017
